FAERS Safety Report 13622180 (Version 1)
Quarter: 2017Q2

REPORT INFORMATION
  Report Type: Spontaneous
  Country: US (occurrence: US)
  Receive Date: 20170607
  Receipt Date: 20170607
  Transmission Date: 20170830
  Serious: Yes (Hospitalization, Other)
  Sender: FDA-Public Use
  Company Number: US-ROCHE-1828552

PATIENT
  Sex: Female

DRUGS (1)
  1. XELODA [Suspect]
     Active Substance: CAPECITABINE
     Indication: PRODUCT USED FOR UNKNOWN INDICATION
     Dosage: TWICE DAILY 7DAYS ON AND 7 OFF
     Route: 048

REACTIONS (4)
  - Vomiting [Not Recovered/Not Resolved]
  - Malaise [Unknown]
  - Dehydration [Unknown]
  - Nausea [Unknown]
